FAERS Safety Report 4555386-4 (Version None)
Quarter: 2005Q1

REPORT INFORMATION
  Report Type: 
  Country: None (occurrence: None)
  Receive Date: 20050118
  Receipt Date: 20050118
  Transmission Date: 20050727
  Serious: Yes (Hospitalization)
  Sender: FDA-Public Use
  Company Number: None

PATIENT
  Age: 70 Year
  Sex: Male
  Weight: 80.7403 kg

DRUGS (3)
  1. VELCADE [Suspect]
     Indication: SQUAMOUS CELL CARCINOMA
     Dosage: 1.0 MG/M2 DAY 1 AND 8 IV
     Route: 042
     Dates: start: 20041105, end: 20041203
  2. OXALIPLATIN [Suspect]
     Indication: SQUAMOUS CELL CARCINOMA
     Dosage: 130.0 MG/M2 DAY 1 IV
     Route: 042
     Dates: start: 20041105, end: 20041126
  3. CAPECITABINE 750 MG/M2 DAY 1-14 PO [Suspect]

REACTIONS (1)
  - PAIN [None]
